FAERS Safety Report 4302159-3 (Version None)
Quarter: 2004Q1

REPORT INFORMATION
  Report Type: 
  Country: None (occurrence: None)
  Receive Date: 20040220
  Receipt Date: 20040211
  Transmission Date: 20041129
  Serious: Yes (Hospitalization)
  Sender: FDA-Public Use
  Company Number: FR-JNJFOC-20040202589

PATIENT
  Age: 73 Year
  Sex: Female

DRUGS (5)
  1. RISPERDAL [Suspect]
     Indication: PSYCHOTIC DISORDER
     Dosage: 1 MG, IN 1 DAY, ORAL
     Route: 048
     Dates: start: 20031212, end: 20040116
  2. PREVISCAN (FLUINDIONE) [Concomitant]
  3. NICARDIPINE HCL [Concomitant]
  4. GLUCOPHAGE [Concomitant]
  5. GLUCOR (ACARBOSE) [Concomitant]

REACTIONS (3)
  - BALANCE DISORDER [None]
  - EXTRAPYRAMIDAL DISORDER [None]
  - NYSTAGMUS [None]
